FAERS Safety Report 5008857-0 (Version None)
Quarter: 2006Q2

REPORT INFORMATION
  Report Type: 
  Country: None (occurrence: None)
  Receive Date: 20060518
  Receipt Date: 20060508
  Transmission Date: 20061013
  Serious: Yes (Other)
  Sender: FDA-Public Use
  Company Number: VNL_0127_2006

PATIENT
  Age: 74 Year
  Sex: Female

DRUGS (2)
  1. APO-GO [Suspect]
     Indication: PARKINSON'S DISEASE
     Dosage: 100 MG INFUSION SC
     Route: 058
  2. CO-BENELDOPA [Concomitant]

REACTIONS (3)
  - BLOOD PRESSURE INCREASED [None]
  - INCORRECT DRUG ADMINISTRATION RATE [None]
  - TREMOR [None]
